FAERS Safety Report 6437511-3 (Version None)
Quarter: 2009Q4

REPORT INFORMATION
  Report Type: 
  Country: None (occurrence: None)
  Receive Date: 20091110
  Receipt Date: 20080612
  Transmission Date: 20100525
  Serious: No
  Sender: FDA-Public Use
  Company Number: AEUSA200800136

PATIENT
  Age: 23 Year
  Sex: Male

DRUGS (1)
  1. GAMUNEX [Suspect]
     Indication: ALLERGENIC DESENSITISATION PROCEDURE
     Dosage: 2 G/KG; IV
     Route: 042
     Dates: start: 20051019, end: 20051019

REACTIONS (1)
  - HAEMOLYTIC ANAEMIA [None]
